FAERS Safety Report 12727434 (Version 1)
Quarter: 2016Q3

REPORT INFORMATION
  Report Type: Spontaneous
  Country: US (occurrence: US)
  Receive Date: 20160909
  Receipt Date: 20160909
  Transmission Date: 20161109
  Serious: No
  Sender: FDA-Public Use
  Company Number: US-BAYER-2016-169081

PATIENT
  Age: 64 Year
  Sex: Female
  Weight: 71.66 kg

DRUGS (1)
  1. MIRALAX [Suspect]
     Active Substance: POLYETHYLENE GLYCOL 3350
     Dosage: 238 GRAMS IN 64 OUNCES OF GATORADE, QD
     Route: 048
     Dates: start: 20160830, end: 20160830

REACTIONS (4)
  - Electrolyte imbalance [Recovered/Resolved]
  - Syncope [Recovered/Resolved]
  - Circumstance or information capable of leading to medication error [Unknown]
  - Off label use [Unknown]

NARRATIVE: CASE EVENT DATE: 20160830
